FAERS Safety Report 5428376-7 (Version None)
Quarter: 2007Q3

REPORT INFORMATION
  Report Type: 
  Country: None (occurrence: None)
  Receive Date: 20070824
  Receipt Date: 20070813
  Transmission Date: 20080115
  Serious: Yes (Other)
  Sender: FDA-Public Use
  Company Number: 1-15208417 /MED 07172

PATIENT
  Age: 76 Year
  Sex: Male
  Weight: 83.9154 kg

DRUGS (5)
  1. ATENOLOL [Suspect]
     Indication: HYPERTENSION
     Dosage: SEE IMAGE ORAL
     Route: 048
     Dates: start: 19820101
  2. TESTOSTERONE INJECTIONS [Concomitant]
  3. NEG-GRAM [Concomitant]
  4. PRINIVIL [Concomitant]
  5. HYDROCHLOROTHIAZIDE [Concomitant]

REACTIONS (4)
  - BLOOD PRESSURE INADEQUATELY CONTROLLED [None]
  - CHEST PAIN [None]
  - PANCREATIC CARCINOMA [None]
  - PROSTATE CANCER [None]
